FAERS Safety Report 14627835 (Version 3)
Quarter: 2018Q2

REPORT INFORMATION
  Report Type: Spontaneous
  Country: US (occurrence: US)
  Receive Date: 20180312
  Receipt Date: 20180524
  Transmission Date: 20180711
  Serious: No
  Sender: FDA-Public Use
  Company Number: US-009507513-1803USA000382

PATIENT
  Age: 20 Year
  Sex: Female
  Weight: 117.91 kg

DRUGS (2)
  1. NEXPLANON [Suspect]
     Active Substance: ETONOGESTREL
     Dosage: STRENGTH: 68 MG; 1 ROD
     Route: 059
     Dates: end: 20180224
  2. NEXPLANON [Suspect]
     Active Substance: ETONOGESTREL
     Dosage: 1 DF, UNK
     Route: 059
     Dates: start: 20180224

REACTIONS (4)
  - Device difficult to use [Recovered/Resolved]
  - Product quality issue [Unknown]
  - No adverse event [Unknown]
  - Device expulsion [Recovered/Resolved]

NARRATIVE: CASE EVENT DATE: 20180224
